FAERS Safety Report 14606702 (Version 39)
Quarter: 2022Q3

REPORT INFORMATION
  Report Type: Other
  Country: CA (occurrence: None)
  Receive Date: 20180307
  Receipt Date: 20220715
  Transmission Date: 20221027
  Serious: Yes (Other)
  Sender: FDA-Public Use
  Company Number: CA-ROCHE-2075035

PATIENT
  Age: 37 Year
  Sex: Female

DRUGS (5)
  1. OCREVUS [Suspect]
     Active Substance: OCRELIZUMAB
     Indication: Relapsing-remitting multiple sclerosis
     Dosage: INITIAL DOSAGE, CONCENTRATE FOR INTRAVENOUS INFUSION?300 MG EVERY 2 WEEKS THEN EVERY 6 MONTHS?ALSO R
     Route: 042
     Dates: start: 20180213
  2. SOLU-MEDROL [Suspect]
     Active Substance: METHYLPREDNISOLONE SODIUM SUCCINATE
     Indication: Product used for unknown indication
     Dosage: INITIAL DOSAGE
     Route: 042
     Dates: start: 20180213
  3. METHYLPREDNISOLONE [Suspect]
     Active Substance: METHYLPREDNISOLONE
     Indication: Premedication
     Route: 065
  4. BENADRYL [Suspect]
     Active Substance: DIPHENHYDRAMINE HYDROCHLORIDE
     Indication: Product used for unknown indication
     Route: 065
  5. COVID-19 VACCINE [Concomitant]
     Dosage: 1ST DOSE
     Dates: start: 20210629

REACTIONS (61)
  - Hypomania [Not Recovered/Not Resolved]
  - Depression [Not Recovered/Not Resolved]
  - Fluid retention [Not Recovered/Not Resolved]
  - Pneumonia [Recovered/Resolved]
  - Infusion related reaction [Recovering/Resolving]
  - Cervix carcinoma [Unknown]
  - Insomnia [Not Recovered/Not Resolved]
  - Pharyngeal paraesthesia [Recovered/Resolved]
  - Mania [Not Recovered/Not Resolved]
  - Infusion related reaction [Not Recovered/Not Resolved]
  - Urticaria [Recovered/Resolved]
  - Pyrexia [Recovered/Resolved]
  - Decreased appetite [Not Recovered/Not Resolved]
  - Insomnia [Recovered/Resolved]
  - Dyspepsia [Recovered/Resolved]
  - Vomiting [Recovered/Resolved]
  - Agitation [Recovered/Resolved]
  - Agitation [Not Recovered/Not Resolved]
  - Restlessness [Recovered/Resolved]
  - Anxiety [Unknown]
  - Nasopharyngitis [Not Recovered/Not Resolved]
  - Fatigue [Not Recovered/Not Resolved]
  - Gingivitis [Recovered/Resolved]
  - Sleep disorder [Recovered/Resolved]
  - Asthenia [Not Recovered/Not Resolved]
  - Malaise [Not Recovered/Not Resolved]
  - Throat irritation [Recovering/Resolving]
  - Somnolence [Not Recovered/Not Resolved]
  - Hypoaesthesia [Not Recovered/Not Resolved]
  - Pharyngeal paraesthesia [Not Recovered/Not Resolved]
  - Gingival recession [Not Recovered/Not Resolved]
  - Dental caries [Not Recovered/Not Resolved]
  - Feeling abnormal [Recovered/Resolved]
  - Irregular sleep wake rhythm disorder [Not Recovered/Not Resolved]
  - Papilloma viral infection [Not Recovered/Not Resolved]
  - Dry skin [Unknown]
  - Fatigue [Recovering/Resolving]
  - Erythema [Not Recovered/Not Resolved]
  - Rash [Recovered/Resolved]
  - Skin fissures [Not Recovered/Not Resolved]
  - Anger [Recovering/Resolving]
  - Weight increased [Unknown]
  - Urinary tract infection [Recovered/Resolved]
  - Vaginal infection [Recovering/Resolving]
  - Crying [Not Recovered/Not Resolved]
  - Fatigue [Not Recovered/Not Resolved]
  - Mania [Recovered/Resolved]
  - Confusional state [Not Recovered/Not Resolved]
  - Memory impairment [Not Recovered/Not Resolved]
  - Hypersensitivity [Not Recovered/Not Resolved]
  - Bone loss [Not Recovered/Not Resolved]
  - Toothache [Unknown]
  - Oral infection [Unknown]
  - Ulcer [Not Recovered/Not Resolved]
  - Injection site pain [Unknown]
  - Photosensitivity reaction [Not Recovered/Not Resolved]
  - Off label use [Unknown]
  - Gingivitis [Not Recovered/Not Resolved]
  - Fracture [Unknown]
  - Oral disorder [Recovered/Resolved]
  - Migraine [Unknown]

NARRATIVE: CASE EVENT DATE: 20180213
